FAERS Safety Report 4414683-3 (Version None)
Quarter: 2004Q3

REPORT INFORMATION
  Report Type: 
  Country: None (occurrence: None)
  Receive Date: 20040729
  Receipt Date: 20040716
  Transmission Date: 20050211
  Serious: Yes (Hospitalization)
  Sender: FDA-Public Use
  Company Number: 2004048539

PATIENT
  Sex: Male
  Weight: 86.1834 kg

DRUGS (5)
  1. TIKOSYN [Suspect]
     Indication: ATRIAL FIBRILLATION
     Dosage: 1000 MCG (500 MCG, 2 IN 1D), ORAL
     Route: 048
     Dates: start: 19951201
  2. FOSINOPRIL SODIUM [Concomitant]
  3. DIGOXIN [Concomitant]
  4. DILTIAZEM HYDROCHLORIDE [Concomitant]
  5. DYAZIDE [Concomitant]

REACTIONS (4)
  - ARRHYTHMIA [None]
  - DYSPEPSIA [None]
  - INFECTION [None]
  - MEDICATION ERROR [None]
